APPROVED DRUG PRODUCT: SPIRONOLACTONE
Active Ingredient: SPIRONOLACTONE
Strength: 50MG
Dosage Form/Route: TABLET;ORAL
Application: A089424 | Product #002 | TE Code: AB
Applicant: SUN PHARMACEUTICAL INDUSTRIES INC
Approved: Aug 11, 1999 | RLD: No | RS: No | Type: RX